FAERS Safety Report 15623012 (Version 1)
Quarter: 2018Q4

REPORT INFORMATION
  Report Type: Spontaneous
  Country: US (occurrence: US)
  Receive Date: 20181115
  Receipt Date: 20181115
  Transmission Date: 20190205
  Serious: No
  Sender: FDA-Public Use
  Company Number: US-ALLERGAN-1773416US

PATIENT
  Sex: Female

DRUGS (1)
  1. GENTAMICIN UNK [Suspect]
     Active Substance: GENTAMICIN
     Indication: EYE DISORDER
     Route: 065

REACTIONS (3)
  - Eye swelling [Unknown]
  - Hypersensitivity [Unknown]
  - Intraocular pressure increased [Unknown]
